FAERS Safety Report 8559186-X (Version None)
Quarter: 2012Q3

REPORT INFORMATION
  Report Type: 
  Country: None (occurrence: None)
  Receive Date: 20120802
  Receipt Date: 20120629
  Transmission Date: 20120928
  Serious: No
  Sender: FDA-Public Use
  Company Number: US-009507513-2012SP032814

PATIENT

DRUGS (1)
  1. IMPLANON [Suspect]
     Indication: CONTRACEPTION
     Dosage: EVERY 3 YEARS
     Route: 059
     Dates: start: 20111202

REACTIONS (4)
  - MENSTRUATION IRREGULAR [None]
  - AMENORRHOEA [None]
  - WEIGHT INCREASED [None]
  - MENORRHAGIA [None]
